FAERS Safety Report 24776139 (Version 1)
Quarter: 2024Q4

REPORT INFORMATION
  Report Type: Spontaneous
  Country: US (occurrence: US)
  Receive Date: 20241226
  Receipt Date: 20241226
  Transmission Date: 20250115
  Serious: No
  Sender: ABBVIE
  Company Number: US-ABBVIE-6050084

PATIENT
  Age: 35 Year
  Sex: Female

DRUGS (2)
  1. RINVOQ [Suspect]
     Active Substance: UPADACITINIB
     Indication: Product used for unknown indication
     Route: 048
  2. DUPIXENT [Suspect]
     Active Substance: DUPILUMAB
     Indication: Dermatitis atopic
     Dosage: STRENGTH: 300M GI2 ML AT A DOSE OF 300 MG Q 0 W
     Route: 058
     Dates: start: 202208

REACTIONS (7)
  - Gastrointestinal disorder [Unknown]
  - Joint swelling [Unknown]
  - Arthralgia [Unknown]
  - Dermatitis atopic [Unknown]
  - Rheumatoid arthritis [Recovering/Resolving]
  - Crohn^s disease [Recovering/Resolving]
  - Condition aggravated [Unknown]

NARRATIVE: CASE EVENT DATE: 20241101
